FAERS Safety Report 9925616 (Version 1)
Quarter: 2014Q1

REPORT INFORMATION
  Report Type: Spontaneous
  Country: US (occurrence: None)
  Receive Date: 20140221
  Receipt Date: 20140221
  Transmission Date: 20141002
  Serious: Yes (Hospitalization, Other)
  Sender: FDA-Public Use
  Company Number: SYM-2014-17733

PATIENT
  Age: 69 Year
  Sex: Female

DRUGS (4)
  1. DILTIAZEM HYDROCHLORIDE [Suspect]
     Indication: ATRIAL FIBRILLATION
  2. FLECAINIDE [Suspect]
     Indication: ATRIAL FIBRILLATION
  3. DIGOXIN (DIGOXIN) (DIGOXIN) [Suspect]
     Indication: ATRIAL FIBRILLATION
  4. LISINOPRIL (LISINOPRIL) (LISINOPRIL) [Concomitant]

REACTIONS (6)
  - Torsade de pointes [None]
  - Ventricular fibrillation [None]
  - Cardiac arrest [None]
  - Atrioventricular block first degree [None]
  - Sinus bradycardia [None]
  - Drug intolerance [None]
